FAERS Safety Report 14436421 (Version 1)
Quarter: 2018Q1

REPORT INFORMATION
  Report Type: Spontaneous
  Country: US (occurrence: US)
  Receive Date: 20180125
  Receipt Date: 20180125
  Transmission Date: 20180509
  Serious: No
  Sender: FDA-Public Use
  Company Number: US-UNITED THERAPEUTICS-UNT-2017-011464

PATIENT
  Sex: Female
  Weight: 76.19 kg

DRUGS (4)
  1. ORENITRAM [Suspect]
     Active Substance: TREPROSTINIL
     Indication: PULMONARY HYPERTENSION
     Dosage: 0.75 MG IN AM AND MID DAY AND 0.625 MG IN PM
     Route: 048
     Dates: start: 20150630
  2. ORENITRAM [Suspect]
     Active Substance: TREPROSTINIL
     Dosage: 0.75 MG, TID
     Route: 048
  3. XARELTO [Concomitant]
     Active Substance: RIVAROXABAN
     Indication: PRODUCT USED FOR UNKNOWN INDICATION
  4. LETAIRIS [Concomitant]
     Active Substance: AMBRISENTAN
     Indication: PRODUCT USED FOR UNKNOWN INDICATION

REACTIONS (12)
  - Foreign body in respiratory tract [Unknown]
  - Fall [Recovered/Resolved with Sequelae]
  - Epistaxis [Unknown]
  - Nephrolithiasis [Unknown]
  - Gout [Unknown]
  - Anaemia [Unknown]
  - Dehydration [Unknown]
  - Gastroenteritis viral [Unknown]
  - Lymphoedema [Unknown]
  - Dyspepsia [Unknown]
  - Dysphagia [Unknown]
  - Haemorrhage [Unknown]
